FAERS Safety Report 12536384 (Version 1)
Quarter: 2016Q3

REPORT INFORMATION
  Report Type: Spontaneous
  Country: US (occurrence: US)
  Receive Date: 20160707
  Receipt Date: 20160707
  Transmission Date: 20161109
  Serious: No
  Sender: FDA-Public Use
  Company Number: US-BRISTOL-MYERS SQUIBB COMPANY-BMS-2016-053348

PATIENT
  Sex: Female

DRUGS (1)
  1. ORENCIA [Suspect]
     Active Substance: ABATACEPT
     Indication: PRODUCT USED FOR UNKNOWN INDICATION
     Dosage: UNK
     Route: 058
     Dates: start: 20160617

REACTIONS (7)
  - Somnolence [Unknown]
  - Headache [Unknown]
  - Eye irritation [Unknown]
  - Nasopharyngitis [Unknown]
  - Asthenia [Unknown]
  - Malaise [Unknown]
  - Pyrexia [Unknown]
